FAERS Safety Report 7280769-1 (Version None)
Quarter: 2011Q1

REPORT INFORMATION
  Report Type: 
  Country: None (occurrence: None)
  Receive Date: 20110126
  Receipt Date: 20110113
  Transmission Date: 20110831
  Serious: Yes (Death)
  Sender: FDA-Public Use
  Company Number: DSA_44710_2011

PATIENT
  Age: 31 Year
  Sex: Male

DRUGS (2)
  1. DILTIAZEM [Suspect]
     Indication: PRODUCT USED FOR UNKNOWN INDICATION
     Dosage: (DF UNKNOWN)
     Dates: start: 20090101, end: 20090101
  2. COCAINE [Suspect]
     Dates: start: 20090101, end: 20090101

REACTIONS (2)
  - POISONING [None]
  - INTENTIONAL DRUG MISUSE [None]
